FAERS Safety Report 17886712 (Version 3)
Quarter: 2020Q3

REPORT INFORMATION
  Report Type: Spontaneous
  Country: GB (occurrence: GB)
  Receive Date: 20200611
  Receipt Date: 20200706
  Transmission Date: 20201103
  Serious: Yes (Hospitalization, Other)
  Sender: FDA-Public Use
  Company Number: NVSC2020GB162285

PATIENT
  Age: 69 Year
  Sex: Male

DRUGS (13)
  1. OLANZAPINE. [Concomitant]
     Active Substance: OLANZAPINE
     Dosage: 15 MG AT NIGHT
     Route: 065
  2. ZOPICLONE [Concomitant]
     Active Substance: ZOPICLONE
     Indication: PRODUCT USED FOR UNKNOWN INDICATION
     Dosage: 7.5 MG AT NIGHT
     Route: 065
  3. FUROSEMIDE. [Suspect]
     Active Substance: FUROSEMIDE
     Indication: LYMPHOEDEMA
     Dosage: 40 MG, BID
     Route: 048
  4. FLUCLOXACILLIN [Concomitant]
     Active Substance: FLUCLOXACILLIN
     Indication: CELLULITIS
     Dosage: 1 G, QID
     Route: 065
  5. LORAZEPAM. [Concomitant]
     Active Substance: LORAZEPAM
     Indication: PRODUCT USED FOR UNKNOWN INDICATION
     Dosage: 5 MG, PRN
     Route: 065
  6. OLANZAPINE. [Concomitant]
     Active Substance: OLANZAPINE
     Indication: AGITATION
     Dosage: 5 MG, 1D
     Route: 065
  7. BISOPROLOL [Suspect]
     Active Substance: BISOPROLOL
     Indication: PRODUCT USED FOR UNKNOWN INDICATION
     Dosage: UNK
     Route: 065
  8. WARFARIN [Suspect]
     Active Substance: WARFARIN
     Indication: ATRIAL FIBRILLATION
     Dosage: UNK
     Route: 065
  9. LITHIUM. [Suspect]
     Active Substance: LITHIUM
     Indication: BIPOLAR DISORDER
     Dosage: UNK
     Route: 065
  10. VALPROATE [Concomitant]
     Active Substance: VALPROIC ACID
     Indication: PRODUCT USED FOR UNKNOWN INDICATION
     Dosage: 250 MG, BID
     Route: 065
  11. OLANZAPINE. [Concomitant]
     Active Substance: OLANZAPINE
     Dosage: 10 MG, QD AT NIGHT
     Route: 065
  12. LORAZEPAM. [Concomitant]
     Active Substance: LORAZEPAM
     Dosage: 2 MG, QD
     Route: 065
  13. LAMOTRIGINE. [Concomitant]
     Active Substance: LAMOTRIGINE
     Indication: AFFECTIVE DISORDER
     Dosage: 200 MG, QD
     Route: 065

REACTIONS (22)
  - Fall [Unknown]
  - Affect lability [Unknown]
  - Flight of ideas [Unknown]
  - Mania [Unknown]
  - Cerebral small vessel ischaemic disease [Unknown]
  - Drug ineffective [Unknown]
  - Ataxia [Unknown]
  - Toxicity to various agents [Unknown]
  - Aggression [Unknown]
  - Sleep disorder [Unknown]
  - Restlessness [Unknown]
  - Disorganised speech [Unknown]
  - Irritability [Unknown]
  - Confusional state [Unknown]
  - International normalised ratio increased [Recovered/Resolved]
  - Agitation [Recovering/Resolving]
  - Hallucination [Unknown]
  - Cellulitis [Unknown]
  - Peripheral swelling [Unknown]
  - Head injury [Unknown]
  - Thinking abnormal [Unknown]
  - Pressure of speech [Unknown]
